FAERS Safety Report 4838261-7 (Version None)
Quarter: 2005Q4

REPORT INFORMATION
  Report Type: 
  Country: None (occurrence: None)
  Receive Date: 20051128
  Receipt Date: 20051004
  Transmission Date: 20060501
  Serious: Yes (Hospitalization, Disabling, Other)
  Sender: FDA-Public Use
  Company Number: US-MERCK-0510USA02292

PATIENT
  Age: 53 Year
  Sex: Male
  Weight: 81 kg

DRUGS (5)
  1. VIOXX [Suspect]
     Indication: MONARTHRITIS
     Route: 048
     Dates: start: 20030717, end: 20031120
  2. CEPHALEXIN [Concomitant]
     Route: 065
  3. ASPIRIN [Concomitant]
     Route: 065
  4. METHYLPREDNISOLONE [Concomitant]
     Route: 065
  5. FOLTX [Concomitant]
     Route: 065

REACTIONS (7)
  - ANAEMIA [None]
  - ATRIOVENTRICULAR BLOCK [None]
  - CARDIOGENIC SHOCK [None]
  - CORONARY ARTERY OCCLUSION [None]
  - DYSLIPIDAEMIA [None]
  - MYOCARDIAL INFARCTION [None]
  - SINUS BRADYCARDIA [None]
